FAERS Safety Report 6591385-9 (Version None)
Quarter: 2010Q1

REPORT INFORMATION
  Report Type: 
  Country: None (occurrence: None)
  Receive Date: 20100219
  Receipt Date: 20100209
  Transmission Date: 20100710
  Serious: Yes (Hospitalization)
  Sender: FDA-Public Use
  Company Number: DE-AMGEN-US379745

PATIENT
  Age: 57 Year
  Sex: Male

DRUGS (4)
  1. ENBREL [Suspect]
     Indication: PSORIATIC ARTHROPATHY
     Route: 058
     Dates: start: 20081125, end: 20091101
  2. GLUCOCORTICOIDS [Concomitant]
     Dosage: 5MG (FREQUENCY UNKNOWN)
  3. NOVALGIN [Concomitant]
     Dosage: AS NEEDED
  4. DICLAC [Concomitant]
     Dosage: 75MG (FREQUENCY UNNKNOWN)

REACTIONS (3)
  - ARTHRODESIS [None]
  - CONDITION AGGRAVATED [None]
  - IMPAIRED HEALING [None]
